FAERS Safety Report 11343955 (Version 1)
Quarter: 2015Q3

REPORT INFORMATION
  Report Type: Spontaneous
  Country: US (occurrence: US)
  Receive Date: 20150806
  Receipt Date: 20150806
  Transmission Date: 20151125
  Serious: No
  Sender: FDA-Public Use
  Company Number: US-PFIZER INC-2015259766

PATIENT
  Age: 64 Year
  Sex: Male

DRUGS (3)
  1. SELECTOL [Concomitant]
     Active Substance: CELIPROLOL
     Indication: BLOOD PRESSURE ABNORMAL
  2. VIAGRA [Suspect]
     Active Substance: SILDENAFIL CITRATE
     Dosage: 100 MG, UNK
  3. VIAGRA [Suspect]
     Active Substance: SILDENAFIL CITRATE
     Dosage: UNK (TAKING IT IN NIGHT )

REACTIONS (1)
  - Drug ineffective [Unknown]
